FAERS Safety Report 7390155-1 (Version None)
Quarter: 2011Q2

REPORT INFORMATION
  Report Type: 
  Country: None (occurrence: None)
  Receive Date: 20110401
  Receipt Date: 20110322
  Transmission Date: 20111010
  Serious: Yes (Hospitalization, Other)
  Sender: FDA-Public Use
  Company Number: PHEH2006US09222

PATIENT
  Sex: Male

DRUGS (53)
  1. ZOMETA [Suspect]
     Indication: METASTASES TO BONE
     Dosage: ONCE PER MONTH
     Dates: start: 20030516, end: 20051101
  2. ZOCOR [Concomitant]
  3. ZOLOFT [Concomitant]
     Dosage: 150 MG, UNK
  4. CASODEX [Concomitant]
  5. NITROGLYCERIN [Concomitant]
     Dosage: 0.4 MG
  6. AMOXICILLIN [Concomitant]
     Dosage: 250 MG
  7. TAXOTERE [Concomitant]
  8. LOVASTATIN [Concomitant]
  9. HYTRIN [Concomitant]
  10. NIACIN [Concomitant]
  11. RESTORIL [Concomitant]
  12. CLOPIDOGREL BISULFATE [Concomitant]
     Dosage: 75 MG
  13. SENNA [Concomitant]
     Dosage: 8.6 MG
  14. OMEPRAZOLE [Concomitant]
     Dosage: 20 MG
  15. FAMCICLOVIR [Concomitant]
     Dosage: 500 MG
  16. FENTANYL [Concomitant]
  17. VASOTEC [Concomitant]
  18. AVAPRO [Concomitant]
  19. ASPIRIN [Concomitant]
     Dosage: 81 MG, UNK
  20. GOSERELIN ACETATE [Concomitant]
     Dosage: 10.8 MG
     Route: 058
  21. NYSTATIN [Concomitant]
     Dosage: UNK
  22. TEMAZEPAM [Concomitant]
     Dosage: 30 MG
  23. SERTRALINE HYDROCHLORIDE [Concomitant]
     Dosage: 100 MG
  24. PENICILLIN VK [Concomitant]
     Dosage: 250 MG
  25. TIAZAC [Concomitant]
  26. DEXAMETHASONE [Concomitant]
     Dosage: UNK, BID
  27. LOSARTAN POTASSIUM [Concomitant]
     Dosage: 25 MG, UNK
  28. CALCIUM [Concomitant]
  29. LOVAZA [Concomitant]
  30. CHEMOTHERAPEUTICS NOS [Concomitant]
  31. NAPROXEN [Concomitant]
     Indication: ARTHRITIS
     Dosage: 250 MG, UNK
  32. LACTULOSE [Concomitant]
     Dosage: 10 GM/15 ML
  33. BICALUTAMIDE [Concomitant]
     Dosage: 50 MG
  34. PROCRIT                            /00909301/ [Concomitant]
  35. MEVACOR [Concomitant]
  36. DETROL [Concomitant]
     Dosage: 4 MG, UNK
  37. TRILISATE [Concomitant]
  38. OXYCODONE [Concomitant]
     Dosage: 10 MG, UNK
  39. OXYBUTYNIN CHLORIDE [Concomitant]
     Dosage: 5 MG
  40. DOCUSATE CALCIUM [Concomitant]
     Dosage: 240 MG
  41. CHLORHEXIDINE GLUCONATE [Concomitant]
     Dosage: UNK
  42. TERAZOSIN HYDROCHLORIDE [Concomitant]
     Dosage: 2.MG
  43. PLAVIX [Concomitant]
  44. IRON [Concomitant]
  45. MULTI-VITAMINS [Concomitant]
  46. PERCOCET [Concomitant]
  47. ZOLADEX [Concomitant]
  48. SIMVASTATIN [Concomitant]
     Dosage: 80 MG
  49. OXYCONTIN [Concomitant]
  50. IRBESARTAN [Concomitant]
     Dosage: 300 MG
  51. TYLENOL W/ CODEINE NO. 3 [Concomitant]
  52. SENOKOT                                 /UNK/ [Concomitant]
  53. PREDNISONE [Concomitant]

REACTIONS (41)
  - MASTICATION DISORDER [None]
  - ARRHYTHMIA [None]
  - NEOPLASM MALIGNANT [None]
  - SPINAL CORD COMPRESSION [None]
  - LUNG INFILTRATION [None]
  - BONE DENSITY DECREASED [None]
  - SYNCOPE [None]
  - OTITIS EXTERNA [None]
  - HAEMATOCHEZIA [None]
  - CHRONIC OBSTRUCTIVE PULMONARY DISEASE [None]
  - HYPERTONIC BLADDER [None]
  - CEREBRAL ISCHAEMIA [None]
  - STOMATITIS [None]
  - INFECTION [None]
  - ORAL PAIN [None]
  - ANXIETY [None]
  - FALL [None]
  - INTERVERTEBRAL DISC PROTRUSION [None]
  - LACUNAR INFARCTION [None]
  - PNEUMONIA [None]
  - BONE PAIN [None]
  - SUBDURAL HAEMATOMA [None]
  - SCOLIOSIS [None]
  - SPINAL OSTEOARTHRITIS [None]
  - DEAFNESS NEUROSENSORY [None]
  - PLEURAL EFFUSION [None]
  - BONE DISORDER [None]
  - INJURY [None]
  - NASAL SEPTUM DEVIATION [None]
  - CEREBRAL ATROPHY [None]
  - PULMONARY VASCULAR DISORDER [None]
  - ORAL DISORDER [None]
  - CARDIOMEGALY [None]
  - LEFT VENTRICULAR DYSFUNCTION [None]
  - OSTEONECROSIS OF JAW [None]
  - PAIN [None]
  - SWELLING [None]
  - RENAL CYST [None]
  - RIB FRACTURE [None]
  - TOOTH LOSS [None]
  - VERTEBRAL FORAMINAL STENOSIS [None]
